FAERS Safety Report 7564041-8 (Version None)
Quarter: 2011Q2

REPORT INFORMATION
  Report Type: 
  Country: None (occurrence: None)
  Receive Date: 20110622
  Receipt Date: 20110614
  Transmission Date: 20111010
  Serious: Yes (Other)
  Sender: FDA-Public Use
  Company Number: US-ELI_LILLY_AND_COMPANY-US201104008069

PATIENT
  Sex: Male

DRUGS (5)
  1. HUMALOG [Concomitant]
     Indication: TYPE 2 DIABETES MELLITUS
     Dosage: 40 U, TID
  2. METFORMIN HCL [Concomitant]
     Indication: TYPE 2 DIABETES MELLITUS
     Dosage: 2000 MG, QD
     Dates: end: 20101005
  3. BYETTA [Suspect]
     Indication: TYPE 2 DIABETES MELLITUS
     Dosage: 5 UG, BID
     Route: 058
     Dates: start: 20091201
  4. BYETTA [Suspect]
     Dosage: 10 UG, BID
     Route: 058
     Dates: start: 20100101, end: 20101005
  5. LANTUS [Concomitant]
     Indication: TYPE 2 DIABETES MELLITUS
     Dosage: 100 U, QD

REACTIONS (2)
  - PANCREATIC CARCINOMA STAGE II [None]
  - OFF LABEL USE [None]
